FAERS Safety Report 12629324 (Version 5)
Quarter: 2025Q3

REPORT INFORMATION
  Report Type: Spontaneous
  Country: EU (occurrence: EU)
  Receive Date: 20160808
  Receipt Date: 20250819
  Transmission Date: 20251020
  Serious: Yes (Other)
  Sender: AUROBINDO
  Company Number: EU-AUROBINDO-AUR-APL-2016-10100

PATIENT
  Age: 65 Year
  Sex: Female

DRUGS (7)
  1. FLECAINIDE [Interacting]
     Active Substance: FLECAINIDE
     Indication: Sinus rhythm
     Dosage: 50 MILLIGRAM, TWO TIMES A DAY
     Route: 065
  2. FLECAINIDE [Interacting]
     Active Substance: FLECAINIDE
     Dosage: 100 MILLIGRAM, ONCE A DAY,50 MG,
     Route: 065
  3. LORATADINE [Interacting]
     Active Substance: LORATADINE
     Indication: Rash
     Route: 048
  4. LORATADINE [Interacting]
     Active Substance: LORATADINE
     Indication: Rash pruritic
  5. ATARAX [Interacting]
     Active Substance: HYDROXYZINE HYDROCHLORIDE
     Indication: Rash
     Route: 065
  6. ATARAX [Interacting]
     Active Substance: HYDROXYZINE HYDROCHLORIDE
     Indication: Rash pruritic
  7. BISOPROLOL [Concomitant]
     Active Substance: BISOPROLOL
     Indication: Product used for unknown indication
     Dosage: 2.5 MILLIGRAM, TWO TIMES A DAY
     Route: 065

REACTIONS (5)
  - Cardiac arrest [Recovered/Resolved]
  - Electrocardiogram QT prolonged [Recovered/Resolved]
  - Torsade de pointes [Recovered/Resolved]
  - Ventricular fibrillation [Recovered/Resolved]
  - Drug interaction [Recovered/Resolved]
